FAERS Safety Report 20727422 (Version 1)
Quarter: 2022Q2

REPORT INFORMATION
  Report Type: Spontaneous
  Country: US (occurrence: None)
  Receive Date: 20220419
  Receipt Date: 20220419
  Transmission Date: 20220720
  Serious: Yes (Hospitalization)
  Sender: FDA-Public Use
  Company Number: US-ROCHE-2825971

PATIENT
  Sex: Female
  Weight: 81.266 kg

DRUGS (6)
  1. AVASTIN [Suspect]
     Active Substance: BEVACIZUMAB
     Indication: Ovarian cancer recurrent
     Route: 065
     Dates: start: 2020, end: 202102
  2. AVASTIN [Suspect]
     Active Substance: BEVACIZUMAB
     Route: 065
     Dates: start: 202102, end: 20210413
  3. AVASTIN [Suspect]
     Active Substance: BEVACIZUMAB
     Route: 042
     Dates: start: 20210204, end: 20210324
  4. WARFARIN [Concomitant]
     Active Substance: WARFARIN
     Dosage: 5-12.5 MG DEPENDING ON INR
     Route: 048
  5. VITAMIN B COMPLEX [Concomitant]
     Active Substance: CYANOCOBALAMIN\DEXPANTHENOL\NIACINAMIDE\PYRIDOXINE HYDROCHLORIDE\RIBOFLAVIN 5^-PHOSPHATE SODIUM\THIA
     Route: 048
  6. VITAMIN D3 [Concomitant]
     Active Substance: CHOLECALCIFEROL
     Dosage: 2,000 IUS
     Route: 048

REACTIONS (13)
  - Infection [Recovered/Resolved]
  - Dermatitis [Not Recovered/Not Resolved]
  - Petechiae [Recovered/Resolved]
  - Chest pain [Recovered/Resolved]
  - Epistaxis [Recovered/Resolved]
  - Eye pain [Recovered/Resolved]
  - Ejection fraction decreased [Not Recovered/Not Resolved]
  - International normalised ratio increased [Recovered/Resolved]
  - Hypertension [Unknown]
  - Blood magnesium decreased [Recovered/Resolved]
  - Vaginal haemorrhage [Recovered/Resolved]
  - Hepatic haemorrhage [Unknown]
  - Rash [Recovered/Resolved]

NARRATIVE: CASE EVENT DATE: 20200101
